APPROVED DRUG PRODUCT: MUCINEX D
Active Ingredient: GUAIFENESIN; PSEUDOEPHEDRINE HYDROCHLORIDE
Strength: 1.2GM;120MG
Dosage Form/Route: TABLET, EXTENDED RELEASE;ORAL
Application: N021585 | Product #002
Applicant: RB HEALTH US LLC
Approved: Jun 22, 2004 | RLD: Yes | RS: Yes | Type: OTC